FAERS Safety Report 8603441-1 (Version None)
Quarter: 2012Q3

REPORT INFORMATION
  Report Type: 
  Country: None (occurrence: None)
  Receive Date: 20120817
  Receipt Date: 20120808
  Transmission Date: 20120928
  Serious: Yes (Other)
  Sender: FDA-Public Use
  Company Number: US-ASTRAZENECA-2012SE44413

PATIENT
  Age: 72 Year
  Sex: Female
  Weight: 61.2 kg

DRUGS (3)
  1. CALCIUM [Concomitant]
  2. ARIMIDEX [Suspect]
     Route: 048
     Dates: start: 20100101
  3. NORVASC [Suspect]
     Indication: BLOOD PRESSURE ABNORMAL
     Route: 065
     Dates: start: 20100101

REACTIONS (7)
  - OROPHARYNGEAL PAIN [None]
  - ROAD TRAFFIC ACCIDENT [None]
  - GASTROOESOPHAGEAL REFLUX DISEASE [None]
  - DYSPNOEA [None]
  - FOREIGN BODY [None]
  - NASOPHARYNGITIS [None]
  - NEOPLASM MALIGNANT [None]
